FAERS Safety Report 12623203 (Version 2)
Quarter: 2017Q3

REPORT INFORMATION
  Report Type: Report from Study
  Country: CA (occurrence: CA)
  Receive Date: 20160804
  Receipt Date: 20170707
  Transmission Date: 20171127
  Serious: Yes (Other)
  Sender: FDA-Public Use
  Company Number: PHHY2013CA140279

PATIENT
  Age: 53 Year
  Sex: Female

DRUGS (2)
  1. SANDOSTATIN LAR DEPOT [Suspect]
     Active Substance: OCTREOTIDE ACETATE
     Indication: NEUROENDOCRINE CARCINOMA
     Dosage: 20 MG, QMO
     Route: 030
     Dates: start: 20130709
  2. SANDOSTATIN LAR DEPOT [Suspect]
     Active Substance: OCTREOTIDE ACETATE
     Dosage: 20 MG, QMO
     Route: 030
     Dates: start: 20140318

REACTIONS (18)
  - Constipation [Unknown]
  - Fatigue [Unknown]
  - Blood pressure diastolic increased [Unknown]
  - Hepatic lesion [Recovering/Resolving]
  - Muscle spasms [Recovered/Resolved]
  - Metastases to liver [Unknown]
  - Injection site haemorrhage [Recovered/Resolved]
  - Pain [Recovered/Resolved]
  - Nasopharyngitis [Recovered/Resolved]
  - Nasal congestion [Recovered/Resolved]
  - Blood pressure systolic increased [Unknown]
  - Abdominal discomfort [Unknown]
  - Decreased appetite [Unknown]
  - Malignant neoplasm progression [Unknown]
  - Injection site pain [Recovering/Resolving]
  - Gingival swelling [Recovered/Resolved]
  - Abdominal distension [Unknown]
  - Injection site pain [Recovered/Resolved]

NARRATIVE: CASE EVENT DATE: 20131125
